FAERS Safety Report 24756608 (Version 1)
Quarter: 2024Q4

REPORT INFORMATION
  Report Type: Spontaneous
  Country: CN (occurrence: CN)
  Receive Date: 20241220
  Receipt Date: 20241220
  Transmission Date: 20250114
  Serious: Yes (Disabling)
  Sender: JIANGSU HENGRUI PHARMACEUTICALS CO., LTD.
  Company Number: CN-JIANGSU HENGRUI PHARMACEUTICALS CO., LTD.-H2024242716

PATIENT
  Age: 69 Year

DRUGS (2)
  1. OXALIPLATIN [Suspect]
     Active Substance: OXALIPLATIN
     Indication: Rectal cancer
     Dosage: 200 MG
  2. BEVACIZUMAB [Suspect]
     Active Substance: BEVACIZUMAB
     Indication: Rectal cancer
     Dosage: 500 MG

REACTIONS (3)
  - Haematemesis [Recovering/Resolving]
  - Temperature intolerance [Recovering/Resolving]
  - Chills [Recovering/Resolving]
